FAERS Safety Report 15201804 (Version 1)
Quarter: 2018Q3

REPORT INFORMATION
  Report Type: Spontaneous
  Country: US (occurrence: US)
  Receive Date: 20180627
  Receipt Date: 20180627
  Transmission Date: 20181010
  Serious: Yes (Other)
  Sender: FDA-Public Use
  Company Number: None

PATIENT
  Age: 65 Year
  Sex: Female
  Weight: 74.25 kg

DRUGS (8)
  1. MELOXICAM. [Concomitant]
     Active Substance: MELOXICAM
  2. OXYCODONE [Concomitant]
     Active Substance: OXYCODONE
  3. MIRAPEX [Concomitant]
     Active Substance: PRAMIPEXOLE DIHYDROCHLORIDE
  4. CALCIUM WITH VIT D [Concomitant]
  5. CYMBALTA [Concomitant]
     Active Substance: DULOXETINE HYDROCHLORIDE
  6. SYNTHROID [Concomitant]
     Active Substance: LEVOTHYROXINE SODIUM
  7. HYDROCODONE BITRARTRATE [Concomitant]
  8. RECLAST [Suspect]
     Active Substance: ZOLEDRONIC ACID
     Indication: OSTEOARTHRITIS
     Dosage: ?          QUANTITY:1 INJECTION(S);?
     Route: 042

REACTIONS (7)
  - Arthralgia [None]
  - Tooth fracture [None]
  - Insurance issue [None]
  - Hypersensitivity [None]
  - Bone pain [None]
  - Loose tooth [None]
  - Nightmare [None]

NARRATIVE: CASE EVENT DATE: 20160918
